FAERS Safety Report 8606172-7 (Version None)
Quarter: 2012Q3

REPORT INFORMATION
  Report Type: 
  Country: None (occurrence: None)
  Receive Date: 20120820
  Receipt Date: 19950428
  Transmission Date: 20120928
  Serious: Yes (Other)
  Sender: FDA-Public Use
  Company Number: US-ROCHE-1101294

PATIENT
  Sex: Female

DRUGS (3)
  1. HEPARIN [Concomitant]
  2. ACTIVASE [Suspect]
     Indication: ACUTE MYOCARDIAL INFARCTION
  3. NITROGLYCERIN [Concomitant]

REACTIONS (13)
  - VENTRICULAR TACHYCARDIA [None]
  - PAIN [None]
  - VENTRICULAR EXTRASYSTOLES [None]
  - BLOOD PRESSURE DECREASED [None]
  - DISORIENTATION [None]
  - SKIN DISCOLOURATION [None]
  - NAUSEA [None]
  - OEDEMA PERIPHERAL [None]
  - RHYTHM IDIOVENTRICULAR [None]
  - EXTRASYSTOLES [None]
  - TONGUE DISORDER [None]
  - VOMITING [None]
  - DRY SKIN [None]
